FAERS Safety Report 22086295 (Version 1)
Quarter: 2023Q1

REPORT INFORMATION
  Report Type: Spontaneous
  Country: US (occurrence: US)
  Receive Date: 20230310
  Receipt Date: 20230310
  Transmission Date: 20230417
  Serious: Yes (Hospitalization, Other)
  Sender: FDA-Public Use
  Company Number: US-HORIZON THERAPEUTICS-HZN-2023-001854

PATIENT

DRUGS (2)
  1. UPLIZNA [Suspect]
     Active Substance: INEBILIZUMAB-CDON
     Indication: Product used for unknown indication
     Dosage: FIRST INFUSION
     Route: 042
  2. UPLIZNA [Suspect]
     Active Substance: INEBILIZUMAB-CDON
     Dosage: RESTARTED INFUSION
     Route: 042

REACTIONS (5)
  - Infusion related reaction [Unknown]
  - Neuromyelitis optica spectrum disorder [Unknown]
  - Seizure [Unknown]
  - COVID-19 [Unknown]
  - Therapy interrupted [Unknown]
